FAERS Safety Report 6670822-5 (Version None)
Quarter: 2010Q2

REPORT INFORMATION
  Report Type: 
  Country: None (occurrence: None)
  Receive Date: 20100407
  Receipt Date: 20090702
  Transmission Date: 20101027
  Serious: Yes (Hospitalization)
  Sender: FDA-Public Use
  Company Number: PL-SANOFI-AVENTIS-200818020GDDC

PATIENT
  Age: 77 Year
  Sex: Male
  Weight: 90 kg

DRUGS (24)
  1. BLINDED THERAPY [Suspect]
     Dosage: DOSE UNIT: 6 MG/KG
     Route: 042
     Dates: start: 20080730, end: 20080730
  2. DOCETAXEL [Suspect]
     Dosage: DOSE UNIT: 75 MG/M**2
     Route: 042
     Dates: start: 20080730, end: 20080730
  3. PREDNISOLONE [Suspect]
     Route: 048
     Dates: start: 20080730, end: 20080820
  4. BISOPROLOL [Concomitant]
  5. DILTIAZEM HCL [Concomitant]
  6. OMEPRAZOLE [Concomitant]
     Dates: start: 20080721
  7. ASPIRIN [Concomitant]
  8. INSULIN [Concomitant]
  9. INSULIN ISOPHANE [Concomitant]
  10. GOSERELIN [Concomitant]
     Indication: HORMONE REPLACEMENT THERAPY
     Dosage: DOSE AS USED: UNK
     Dates: start: 20071207
  11. DALTEPARIN SODIUM [Concomitant]
     Dosage: DOSE AS USED: UNK
     Dates: start: 20080919
  12. RESONIUM-CALCIUM [Concomitant]
     Dosage: DOSE AS USED: UNK
     Dates: start: 20081021, end: 20081021
  13. SODIUM CHLORIDE [Concomitant]
     Dosage: DOSE AS USED: UNK
     Dates: start: 20080820, end: 20080820
  14. SODIUM CHLORIDE [Concomitant]
     Dosage: DOSE AS USED: 0.9%
     Dates: start: 20081021, end: 20081021
  15. FUROSEMIDE [Concomitant]
     Dosage: DOSE AS USED: UNK
     Dates: start: 20081021, end: 20081021
  16. NEORECORMON ^BOEHRINGER MANNHEIM^ [Concomitant]
     Dosage: DOSE AS USED: UNK
     Dates: start: 20081014, end: 20081014
  17. CIPROFLOXACIN [Concomitant]
     Dosage: DOSE AS USED: UNK
     Dates: start: 20081105, end: 20081115
  18. MEGESTROL ACETATE [Concomitant]
     Dosage: DOSE AS USED: UNK
     Dates: start: 20081105
  19. LACTULOSE [Concomitant]
     Dosage: DOSE AS USED: UNK
     Dates: start: 20081113
  20. ARANESP [Concomitant]
     Dosage: DOSE AS USED: UNK
     Dates: start: 20081113, end: 20081113
  21. ORNITHINE ASPARTATE [Concomitant]
     Dosage: DOSE AS USED: UNK
     Dates: start: 20081104
  22. TIMONACIC [Concomitant]
     Dosage: DOSE AS USED: UNK
     Dates: start: 20081104
  23. AUGMENTIN '125' [Concomitant]
     Dosage: DOSE AS USED: UNK
     Dates: start: 20081126, end: 20081203
  24. POTASSIUM CHLORIDE [Concomitant]
     Dosage: DOSE AS USED: UNK
     Dates: start: 20080820, end: 20080820

REACTIONS (3)
  - DEHYDRATION [None]
  - HYPERGLYCAEMIA [None]
  - RENAL FAILURE [None]
